FAERS Safety Report 18139825 (Version 1)
Quarter: 2020Q3

REPORT INFORMATION
  Report Type: Spontaneous
  Country: US (occurrence: US)
  Receive Date: 20200812
  Receipt Date: 20200812
  Transmission Date: 20201103
  Serious: No
  Sender: FDA-Public Use
  Company Number: None

PATIENT
  Age: 61 Year
  Sex: Male

DRUGS (1)
  1. HUMIRA [Suspect]
     Active Substance: ADALIMUMAB
     Indication: ANKYLOSING SPONDYLITIS
     Dosage: OTHER FREQUENCY:EVERY 2 WEEKSASDIR; AS DIRECTED?
     Route: 042
     Dates: start: 201912

REACTIONS (3)
  - Suspected COVID-19 [None]
  - Therapy interrupted [None]
  - Pneumonia [None]
